FAERS Safety Report 8199300-1 (Version None)
Quarter: 2012Q1

REPORT INFORMATION
  Report Type: 
  Country: None (occurrence: None)
  Receive Date: 20120309
  Receipt Date: 20120228
  Transmission Date: 20120608
  Serious: Yes (Hospitalization)
  Sender: FDA-Public Use
  Company Number: FR-FRI-1000028829

PATIENT
  Sex: Female

DRUGS (6)
  1. CALCIPARINE [Suspect]
     Indication: PULMONARY EMBOLISM
     Dosage: 12500 IU
     Route: 058
     Dates: start: 20111219, end: 20111225
  2. LASIX [Suspect]
     Dosage: 1 G
     Route: 048
     Dates: end: 20111201
  3. ASPIRIN [Suspect]
     Indication: PULMONARY EMBOLISM
     Dosage: 75 MG
     Route: 048
     Dates: start: 20111220, end: 20111224
  4. EUPRESSYL [Suspect]
     Dosage: 120 MG
     Route: 048
     Dates: start: 20110101, end: 20111224
  5. NEBIVOLOL [Suspect]
     Dosage: 10 MG
     Route: 048
     Dates: start: 20110101, end: 20111224
  6. ACUPAN [Suspect]
     Dosage: 60 MG
     Route: 040
     Dates: start: 20111225, end: 20111225

REACTIONS (2)
  - MUSCLE HAEMORRHAGE [None]
  - ANAEMIA [None]
